FAERS Safety Report 8144573-4 (Version None)
Quarter: 2012Q1

REPORT INFORMATION
  Report Type: 
  Country: None (occurrence: None)
  Receive Date: 20120217
  Receipt Date: 20120214
  Transmission Date: 20120608
  Serious: Yes (Death, Hospitalization)
  Sender: FDA-Public Use
  Company Number: NL-GENZYME-CLOF-1002030

PATIENT
  Sex: Male

DRUGS (3)
  1. CYTARABINE [Suspect]
     Indication: HAEMATOLOGICAL MALIGNANCY
     Dosage: 400 UNK, UNK
     Route: 042
     Dates: start: 20120116, end: 20120122
  2. IDARUBICIN HCL [Suspect]
     Indication: HAEMATOLOGICAL MALIGNANCY
     Dosage: 24 UNK, UNK
     Route: 042
     Dates: start: 20120116, end: 20120118
  3. EVOLTRA [Suspect]
     Indication: HAEMATOLOGICAL MALIGNANCY
     Dosage: 20 UNK, UNK
     Route: 042
     Dates: start: 20120116, end: 20120120

REACTIONS (2)
  - RESPIRATORY FAILURE [None]
  - PNEUMONIA [None]
